FAERS Safety Report 4895349-2 (Version None)
Quarter: 2006Q1

REPORT INFORMATION
  Report Type: 
  Country: None (occurrence: None)
  Receive Date: 20060130
  Receipt Date: 20060125
  Transmission Date: 20060701
  Serious: Yes (Hospitalization)
  Sender: FDA-Public Use
  Company Number: FR-MERCK-0601FRA00086

PATIENT
  Age: 57 Year
  Sex: Female

DRUGS (6)
  1. SINGULAIR [Suspect]
     Indication: ASTHMA
     Route: 048
     Dates: start: 20030101, end: 20050901
  2. TERBUTALINE SULFATE [Concomitant]
     Indication: ASTHMA
     Route: 055
  3. ACETAMINOPHEN [Concomitant]
     Route: 048
  4. IPRATROPIUM BROMIDE [Concomitant]
     Route: 055
  5. FLUTICASONE PROPIONATE [Concomitant]
     Route: 055
  6. HYDROXYZINE HYDROCHLORIDE [Concomitant]
     Indication: ANXIETY
     Route: 048

REACTIONS (1)
  - ALLERGIC GRANULOMATOUS ANGIITIS [None]
